FAERS Safety Report 20138737 (Version 2)
Quarter: 2022Q1

REPORT INFORMATION
  Report Type: Spontaneous
  Country: PL (occurrence: PL)
  Receive Date: 20211202
  Receipt Date: 20220202
  Transmission Date: 20220423
  Serious: Yes (Hospitalization, Other)
  Sender: FDA-Public Use
  Company Number: PL-NOVARTISPH-NVSC2021PL265435

PATIENT
  Age: 50 Year
  Sex: Male

DRUGS (19)
  1. BISOPROLOL [Suspect]
     Active Substance: BISOPROLOL
     Indication: Product used for unknown indication
     Dosage: 10 MG (1 X 10 MG)
     Route: 065
  2. BISOPROLOL [Suspect]
     Active Substance: BISOPROLOL
     Dosage: 5 MG
     Route: 065
  3. BISOPROLOL [Suspect]
     Active Substance: BISOPROLOL
     Dosage: 7.5 MG (1 X 7.5 MG)
     Route: 065
  4. ATORVASTATIN [Suspect]
     Active Substance: ATORVASTATIN
     Indication: Product used for unknown indication
     Dosage: 20 MG, QD (1X1 TABLET)
     Route: 065
  5. SILDENAFIL [Suspect]
     Active Substance: SILDENAFIL
     Indication: Product used for unknown indication
     Dosage: 25 MG (3 X 25 MG)
     Route: 065
  6. SILDENAFIL [Suspect]
     Active Substance: SILDENAFIL
     Dosage: 12.5 MG (3 X 12.5 MG)
     Route: 065
  7. SILDENAFIL [Suspect]
     Active Substance: SILDENAFIL
     Dosage: 0.25 MG (3 X 1)
     Route: 065
  8. RIVAROXABAN [Suspect]
     Active Substance: RIVAROXABAN
     Indication: Product used for unknown indication
     Dosage: 20 MG, QD
     Route: 065
  9. RIVAROXABAN [Suspect]
     Active Substance: RIVAROXABAN
     Dosage: 0.02 G (1 DF DURING MEALS)
     Route: 065
  10. PERINDOPRIL [Suspect]
     Active Substance: PERINDOPRIL
     Indication: Product used for unknown indication
     Dosage: 10 MG (1 X 10 MG)
     Route: 065
  11. FUROSEMIDE [Suspect]
     Active Substance: FUROSEMIDE
     Indication: Product used for unknown indication
     Dosage: 40 MG, BID (2 X 1 TABLET)
     Route: 065
  12. EPLERENONE [Suspect]
     Active Substance: EPLERENONE
     Indication: Product used for unknown indication
     Dosage: 50 MG (1X 50 MG)
     Route: 065
  13. ENTRESTO [Concomitant]
     Active Substance: SACUBITRIL\VALSARTAN
     Indication: Product used for unknown indication
     Dosage: UNK (2 X 24/26 MG)
     Route: 065
  14. ENTRESTO [Concomitant]
     Active Substance: SACUBITRIL\VALSARTAN
     Dosage: UNK (2 X 49/51 MG)
     Route: 065
  15. ENTRESTO [Concomitant]
     Active Substance: SACUBITRIL\VALSARTAN
     Dosage: UNK 2 X 97/103 MG (HIGHER DOSE)
     Route: 065
  16. METOPROLOL [Concomitant]
     Active Substance: METOPROLOL
     Indication: Product used for unknown indication
     Dosage: 25 MG (3 X 25 MG)
     Route: 065
  17. TORSEMIDE [Concomitant]
     Active Substance: TORSEMIDE
     Indication: Product used for unknown indication
     Dosage: 10 MG (2 X 10 MG)
     Route: 065
  18. TORSEMIDE [Concomitant]
     Active Substance: TORSEMIDE
     Dosage: UNK (5 MG AND 2.5 MG IN THE AFTERNOON )
     Route: 065
  19. AMIODARONE [Concomitant]
     Active Substance: AMIODARONE
     Indication: Product used for unknown indication
     Dosage: 200 MG (1 X 200 MG)
     Route: 065

REACTIONS (14)
  - Ventricular tachycardia [Unknown]
  - Ventricular hypokinesia [Unknown]
  - Thrombosis [Unknown]
  - Myocardial infarction [Unknown]
  - Tricuspid valve incompetence [Unknown]
  - Cardiac failure acute [Unknown]
  - Left atrial enlargement [Unknown]
  - Ventricular dyskinesia [Unknown]
  - Oedema peripheral [Unknown]
  - Blood thyroid stimulating hormone increased [Unknown]
  - Blood sodium decreased [Unknown]
  - White blood cell count increased [Unknown]
  - N-terminal prohormone brain natriuretic peptide increased [Recovering/Resolving]
  - Gastrointestinal disorder [Unknown]

NARRATIVE: CASE EVENT DATE: 20190601
